FAERS Safety Report 4808483-X (Version None)
Quarter: 2005Q4

REPORT INFORMATION
  Report Type: 
  Country: None (occurrence: None)
  Receive Date: 20051021
  Receipt Date: 20030808
  Transmission Date: 20060501
  Serious: No
  Sender: FDA-Public Use
  Company Number: DE_030811838

PATIENT
  Age: 33 Year
  Sex: Male

DRUGS (2)
  1. ZYPREXA [Suspect]
     Indication: PSYCHOTIC DISORDER
     Dosage: 5 MG/DAY
     Dates: start: 20030101
  2. METHADONE [Concomitant]

REACTIONS (2)
  - ANAEMIA [None]
  - EOSINOPHILIA [None]
